FAERS Safety Report 20534183 (Version 1)
Quarter: 2022Q1

REPORT INFORMATION
  Report Type: Report from Study
  Country: US (occurrence: US)
  Receive Date: 20220301
  Receipt Date: 20220301
  Transmission Date: 20220423
  Serious: Yes (Hospitalization, Other)
  Sender: FDA-Public Use
  Company Number: US-ABBVIE-22K-163-4283746-00

PATIENT
  Sex: Female

DRUGS (2)
  1. IMBRUVICA [Suspect]
     Active Substance: IBRUTINIB
     Indication: Chronic lymphocytic leukaemia
     Route: 048
     Dates: start: 201812
  2. IMBRUVICA [Suspect]
     Active Substance: IBRUTINIB
     Route: 048

REACTIONS (9)
  - Immune system disorder [Unknown]
  - Heart rate irregular [Unknown]
  - Macular degeneration [Unknown]
  - COVID-19 pneumonia [Unknown]
  - Asthma [Unknown]
  - Respiratory disorder [Unknown]
  - Sensory disturbance [Unknown]
  - Dehydration [Unknown]
  - Unevaluable event [Unknown]
